FAERS Safety Report 17380707 (Version 1)
Quarter: 2020Q1

REPORT INFORMATION
  Report Type: Spontaneous
  Country: US (occurrence: US)
  Receive Date: 20200206
  Receipt Date: 20200206
  Transmission Date: 20200409
  Serious: No
  Sender: FDA-Public Use
  Company Number: None

PATIENT
  Age: 18 Year
  Sex: Female
  Weight: 68.4 kg

DRUGS (3)
  1. ZOLOFT [Concomitant]
     Active Substance: SERTRALINE HYDROCHLORIDE
  2. SINGULAIR [Concomitant]
     Active Substance: MONTELUKAST SODIUM
  3. LEVETIRACETAM ORAL SOLUTION 100MG/ML [Suspect]
     Active Substance: LEVETIRACETAM
     Indication: SEIZURE
     Dosage: ?          QUANTITY:3 TEASPOON(S);?
     Route: 048
     Dates: start: 20191207, end: 20200107

REACTIONS (4)
  - Nausea [None]
  - Hypophagia [None]
  - Recalled product administered [None]
  - Food refusal [None]

NARRATIVE: CASE EVENT DATE: 20200102
